FAERS Safety Report 26172773 (Version 1)
Quarter: 2025Q4

REPORT INFORMATION
  Report Type: Spontaneous
  Country: EU (occurrence: EU)
  Receive Date: 20251218
  Receipt Date: 20251218
  Transmission Date: 20260118
  Serious: Yes (Hospitalization, Other)
  Sender: TORRENT PHARMA INC.
  Company Number: None

PATIENT
  Sex: Male

DRUGS (4)
  1. QUETIAPINE [Suspect]
     Active Substance: QUETIAPINE
     Indication: Product used for unknown indication
     Dosage: FOR MOTHER 200 MG PER DAY FROM 12-2023 TO 09-2024 FOR 278 DAYS
     Route: 064
  2. SERTRALINE [Suspect]
     Active Substance: SERTRALINE HYDROCHLORIDE
     Indication: Product used for unknown indication
     Dosage: FOR MOTHER 100 MG PER DAY FROM 12-2023 TO 09-2024 FOR 278 DAYS
     Route: 064
  3. FOLIC ACID [Concomitant]
     Active Substance: FOLIC ACID
     Indication: Product used for unknown indication
     Dosage: 11-2024 TO 03-2025 FOR 141 DAYS
     Route: 064
  4. Thyronajod 100 [Concomitant]
     Indication: Product used for unknown indication
     Dosage: 100 G LEVOTHYROXINE/150 G IODIDE PER DAY FROM 12-2023 TO 09-2024 FOR 278 DAYS
     Route: 064

REACTIONS (4)
  - Bradycardia neonatal [Recovered/Resolved]
  - Respiratory disorder neonatal [Recovered/Resolved]
  - Foetal exposure during pregnancy [Unknown]
  - Fever neonatal [Unknown]

NARRATIVE: CASE EVENT DATE: 20240901
